FAERS Safety Report 23898280 (Version 1)
Quarter: 2024Q2

REPORT INFORMATION
  Report Type: Spontaneous
  Country: BR (occurrence: BR)
  Receive Date: 20240524
  Receipt Date: 20240524
  Transmission Date: 20240715
  Serious: Yes (Other)
  Sender: FDA-Public Use
  Company Number: BR-SA-SAC20231116001529

PATIENT
  Age: 3 Year
  Sex: Male

DRUGS (5)
  1. SABRIL [Suspect]
     Active Substance: VIGABATRIN
     Indication: Lennox-Gastaut syndrome
     Dosage: 0.5 DF, QD
     Route: 048
  2. SABRIL [Suspect]
     Active Substance: VIGABATRIN
     Indication: Epilepsy
     Route: 065
  3. CLOBAZAM [Suspect]
     Active Substance: CLOBAZAM
     Indication: Product used for unknown indication
     Dosage: UNK
     Route: 065
  4. CANNABIDIOL [Concomitant]
     Active Substance: CANNABIDIOL
     Indication: Product used for unknown indication
     Dosage: UNK
     Route: 065
  5. MELATONIN [Concomitant]
     Active Substance: MELATONIN
     Indication: Product used for unknown indication
     Dosage: UNK
     Route: 065

REACTIONS (5)
  - Seizure [Unknown]
  - Drug dependence [Unknown]
  - Poor quality product administered [Unknown]
  - Product use in unapproved indication [Unknown]
  - Wrong technique in product usage process [Unknown]
